FAERS Safety Report 5246145-8 (Version None)
Quarter: 2007Q1

REPORT INFORMATION
  Report Type: 
  Country: None (occurrence: None)
  Receive Date: 20070220
  Receipt Date: 20070207
  Transmission Date: 20070707
  Serious: Yes (Hospitalization)
  Sender: FDA-Public Use
  Company Number: GXKR2007JP01120

PATIENT
  Age: 30 Year
  Sex: Female

DRUGS (3)
  1. METHYLPREDNISOLONE [Suspect]
     Indication: SYSTEMIC LUPUS ERYTHEMATOSUS
  2. PREDNISOLONE [Suspect]
     Indication: SYSTEMIC LUPUS ERYTHEMATOSUS
     Dosage: 30 MG/DAY, ORAL
     Route: 048
  3. IMMUNOSUPPRESSIVE AGENTS(NO INGREDIENTS/SUBSTANCES) UNKNOWN [Suspect]
     Indication: SYSTEMIC LUPUS ERYTHEMATOSUS

REACTIONS (9)
  - CYTOMEGALOVIRUS COLITIS [None]
  - FUNGAL DNA TEST POSITIVE [None]
  - HAEMOGLOBIN DECREASED [None]
  - HAEMOPTYSIS [None]
  - HYPOXIA [None]
  - LARGE INTESTINAL ULCER [None]
  - MELAENA [None]
  - PULMONARY ALVEOLAR HAEMORRHAGE [None]
  - PYREXIA [None]
